FAERS Safety Report 7913734-9 (Version None)
Quarter: 2011Q4

REPORT INFORMATION
  Report Type: 
  Country: None (occurrence: None)
  Receive Date: 20111110
  Receipt Date: 20111027
  Transmission Date: 20120403
  Serious: Yes (Hospitalization)
  Sender: FDA-Public Use
  Company Number: DSA_48129_2011

PATIENT
  Age: 79 Year
  Sex: Male

DRUGS (7)
  1. DILTIAZEM HYDROCHLORIDE [Suspect]
     Indication: MYOCARDIAL INFARCTION
     Dosage: (DF)
  2. MOXIFLOXACIN HCL [Suspect]
     Indication: URINARY TRACT INFECTION
     Dosage: (DF)
  3. ASPIRIN [Suspect]
     Indication: MYOCARDIAL INFARCTION
     Dosage: (DF)
  4. ATORVASTATIN [Suspect]
     Indication: MYOCARDIAL INFARCTION
     Dosage: (DF)
  5. LORAZEPAM [Suspect]
     Indication: MYOCARDIAL INFARCTION
     Dosage: (DF)
  6. CIPROFLOXACIN [Suspect]
     Indication: URINARY TRACT INFECTION
     Dosage: (DF)
  7. NITROGLYCERIN [Suspect]
     Indication: MYOCARDIAL INFARCTION
     Dosage: (DF)

REACTIONS (10)
  - DECREASED APPETITE [None]
  - ALANINE AMINOTRANSFERASE INCREASED [None]
  - BLOOD ALKALINE PHOSPHATASE INCREASED [None]
  - ANTINUCLEAR ANTIBODY POSITIVE [None]
  - URINARY TRACT DISORDER [None]
  - ASTHENIA [None]
  - JAUNDICE [None]
  - HYPERGAMMAGLOBULINAEMIA [None]
  - LIVER INJURY [None]
  - DISEASE RECURRENCE [None]
